FAERS Safety Report 4351107-9 (Version None)
Quarter: 2004Q2

REPORT INFORMATION
  Report Type: 
  Country: None (occurrence: None)
  Receive Date: 20040427
  Receipt Date: 20040416
  Transmission Date: 20050107
  Serious: Yes (Disabling)
  Sender: FDA-Public Use
  Company Number: 2004209981SE

PATIENT
  Sex: Female

DRUGS (2)
  1. XANOR DEPOT (ALPRAZOLAM ) TABLET, EXTENDED RELEASE [Suspect]
     Indication: ANXIETY
     Dosage: 1 MG, QD, ORAL
     Route: 048
     Dates: start: 20000419, end: 20030324
  2. ANTIBIOTICS [Concomitant]

REACTIONS (4)
  - APTYALISM [None]
  - CONDITION AGGRAVATED [None]
  - TOOTH DISORDER [None]
  - VISUAL DISTURBANCE [None]
